FAERS Safety Report 7265725-1 (Version None)
Quarter: 2011Q1

REPORT INFORMATION
  Report Type: 
  Country: None (occurrence: None)
  Receive Date: 20110131
  Receipt Date: 20110117
  Transmission Date: 20110831
  Serious: Yes (Hospitalization, Other)
  Sender: FDA-Public Use
  Company Number: US-ELI_LILLY_AND_COMPANY-US200911003237

PATIENT
  Sex: Female

DRUGS (12)
  1. FORTEO [Suspect]
     Indication: OSTEOPOROSIS
     Dosage: 20 UG, DAILY (1/D)
     Route: 065
     Dates: start: 20090711
  2. BENICAR [Concomitant]
     Indication: BLOOD PRESSURE
  3. SINGULAIR [Concomitant]
     Indication: ASTHMA
     Dosage: UNK, DAILY (1/D)
  4. CORTEF [Concomitant]
  5. VERAPAMIL [Concomitant]
  6. LASIX [Concomitant]
  7. PULMICORT [Concomitant]
  8. METHADONE HCL [Concomitant]
  9. DILAUDID [Concomitant]
  10. OGEN [Concomitant]
  11. LYRICA [Concomitant]
  12. SEREVENT [Concomitant]

REACTIONS (11)
  - DISCOMFORT [None]
  - CONTUSION [None]
  - ADDISON'S DISEASE [None]
  - SPINAL DISORDER [None]
  - NAUSEA [None]
  - DECREASED APPETITE [None]
  - CEREBROVASCULAR ACCIDENT [None]
  - CARDIAC FAILURE CONGESTIVE [None]
  - MEDICATION ERROR [None]
  - HOSPITALISATION [None]
  - DRUG DOSE OMISSION [None]
